FAERS Safety Report 22400140 (Version 1)
Quarter: 2023Q2

REPORT INFORMATION
  Report Type: Report from Study
  Country: AT (occurrence: AT)
  Receive Date: 20230602
  Receipt Date: 20230602
  Transmission Date: 20230722
  Serious: Yes (Hospitalization)
  Sender: FDA-Public Use
  Company Number: AT-PHARMAESSENTIA-AT-2023-PEC-001480

PATIENT

DRUGS (15)
  1. BESREMI [Suspect]
     Active Substance: ROPEGINTERFERON ALFA-2B-NJFT
     Indication: Polycythaemia vera
     Dosage: 125 MCG, Q2W
     Route: 058
     Dates: start: 20220304, end: 20220503
  2. BESREMI [Suspect]
     Active Substance: ROPEGINTERFERON ALFA-2B-NJFT
     Dosage: 200 MCG, Q2W
     Route: 058
     Dates: start: 20220503
  3. LEVOTHYROXINE SODIUM [Concomitant]
     Active Substance: LEVOTHYROXINE SODIUM
     Indication: Autoimmune thyroiditis
     Dosage: 75 MCG, QD
     Route: 048
  4. AMLODIPINE\CANDESARTAN CILEXETIL [Concomitant]
     Active Substance: AMLODIPINE\CANDESARTAN CILEXETIL
     Indication: Hypertension
     Dosage: 16 MG, QD
     Route: 048
     Dates: end: 20220502
  5. AMLODIPINE\CANDESARTAN CILEXETIL [Concomitant]
     Active Substance: AMLODIPINE\CANDESARTAN CILEXETIL
     Dosage: 8 MG, QD
     Route: 048
     Dates: start: 20220503
  6. NEBIVOLOL [Concomitant]
     Active Substance: NEBIVOLOL
     Indication: Hypertension
     Dosage: 5 MG, QD
     Route: 048
  7. ROSUVASTATIN [Concomitant]
     Active Substance: ROSUVASTATIN
     Indication: Hypercholesterolaemia
     Dosage: 20 MG, QD
     Route: 048
  8. ASPIRIN [Concomitant]
     Active Substance: ASPIRIN
     Indication: Polycythaemia vera
     Dosage: 100 MG, QD
     Route: 048
     Dates: start: 20220217, end: 202208
  9. CHOLECALCIFEROL [Concomitant]
     Active Substance: CHOLECALCIFEROL
     Indication: Vitamin supplementation
     Dosage: 30 DROP, QW
     Route: 048
     Dates: start: 20220304
  10. ACETAMINOPHEN [Concomitant]
     Active Substance: ACETAMINOPHEN
     Indication: Antiviral prophylaxis
     Dosage: 500 MG, AS NECESSARY
     Route: 048
     Dates: start: 20220304, end: 20220613
  11. ELOMEL [Concomitant]
     Indication: Vertigo
     Dosage: 500 MILLILITER, QD
     Route: 042
     Dates: start: 20220503, end: 20220503
  12. 3M CAVILON ANTIFUNGAL [Concomitant]
     Active Substance: MICONAZOLE NITRATE
     Indication: Rash
     Dosage: 1 DOSAGE FORM, QD, DOSING FREQUENCY AMOUNT: 2X.
     Route: 061
     Dates: start: 20220518, end: 20220613
  13. HYDROMORPHONE HYDROCHLORIDE [Concomitant]
     Active Substance: HYDROMORPHONE HYDROCHLORIDE
     Indication: Leg amputation
     Dosage: 2 MG, QD, DOSING FREQUENCY AMOUNT: 2X
     Route: 048
     Dates: start: 20220519, end: 20220613
  14. PREGABALIN [Concomitant]
     Active Substance: PREGABALIN
     Indication: Leg amputation
     Dosage: 25 MG, QD, DOSING FREQUENCY AMOUNT: 2X
     Route: 048
     Dates: start: 20220519, end: 20220613
  15. NOVALGIN (METAMIZOLE SODIUM) [Concomitant]
     Active Substance: METAMIZOLE SODIUM
     Indication: Pain
     Dosage: 40 DROP, AS NECESSARY
     Route: 048
     Dates: start: 20220519, end: 20220613

REACTIONS (1)
  - Gangrene [Recovering/Resolving]

NARRATIVE: CASE EVENT DATE: 20220509
